FAERS Safety Report 9489868 (Version 1)
Quarter: 2013Q3

REPORT INFORMATION
  Report Type: Spontaneous
  Country: US (occurrence: US)
  Receive Date: 20130725
  Receipt Date: 20130725
  Transmission Date: 20140515
  Serious: No
  Sender: FDA-Public Use
  Company Number: US-GLAXOSMITHKLINE-A1015127A

PATIENT
  Sex: Male

DRUGS (6)
  1. AVANDIA [Suspect]
     Indication: TYPE 2 DIABETES MELLITUS
     Dosage: 2MG TWICE PER DAY
     Route: 048
     Dates: start: 2003
  2. AMLODIPINE + BENAZEPRIL [Concomitant]
  3. FISH OIL [Concomitant]
  4. GARLIC [Concomitant]
  5. AMARYL [Concomitant]
  6. METFORMIN [Concomitant]

REACTIONS (8)
  - Weight increased [Not Recovered/Not Resolved]
  - Weight fluctuation [Unknown]
  - Dry skin [Unknown]
  - Eczema [Unknown]
  - Cold sweat [Unknown]
  - Asthenia [Unknown]
  - Blood glucose decreased [Unknown]
  - Cerumen impaction [Unknown]
